FAERS Safety Report 8484953-0 (Version None)
Quarter: 2012Q3

REPORT INFORMATION
  Report Type: 
  Country: None (occurrence: None)
  Receive Date: 20120703
  Receipt Date: 20120629
  Transmission Date: 20120928
  Serious: Yes (Other)
  Sender: FDA-Public Use
  Company Number: US-PFIZER INC-2012105227

PATIENT
  Sex: Male

DRUGS (3)
  1. CHANTIX [Suspect]
     Indication: SMOKING CESSATION THERAPY
     Dosage: STARTER PAK
     Dates: start: 20071001, end: 20071101
  2. MORPHINE [Concomitant]
     Indication: PAIN
     Dosage: UNK
     Dates: start: 20040101
  3. MIRTAZAPINE [Concomitant]
     Indication: DEPRESSION
     Dosage: UNK
     Dates: start: 20060101

REACTIONS (3)
  - ANXIETY [None]
  - DEPRESSION [None]
  - NIGHTMARE [None]
